FAERS Safety Report 12378981 (Version 2)
Quarter: 2016Q2

REPORT INFORMATION
  Report Type: Spontaneous
  Country: BR (occurrence: BR)
  Receive Date: 20160517
  Receipt Date: 20160530
  Transmission Date: 20160815
  Serious: Yes (Hospitalization)
  Sender: FDA-Public Use
  Company Number: BR-BIOGEN-2016BI00235725

PATIENT
  Age: 26 Year
  Sex: Male

DRUGS (2)
  1. TECFIDERA [Suspect]
     Active Substance: DIMETHYL FUMARATE
     Route: 065
  2. TECFIDERA [Suspect]
     Active Substance: DIMETHYL FUMARATE
     Indication: MULTIPLE SCLEROSIS
     Route: 048
     Dates: start: 20150508, end: 20160515

REACTIONS (3)
  - Dysarthria [Unknown]
  - Gait disturbance [Unknown]
  - Central nervous system lesion [Unknown]

NARRATIVE: CASE EVENT DATE: 20160201
